FAERS Safety Report 8896622 (Version 1)
Quarter: 2012Q4

REPORT INFORMATION
  Report Type: Spontaneous
  Country: BE (occurrence: None)
  Receive Date: 20121105
  Receipt Date: 20121105
  Transmission Date: 20130627
  Serious: Yes (Death)
  Sender: FDA-Public Use
  Company Number: CIP-2012-00378

PATIENT
  Sex: Female

DRUGS (7)
  1. CARBOPLATIN [Suspect]
     Indication: METASTATIC CHORIOCARCINOMA
  2. ETOPOSIDE [Suspect]
     Indication: METASTATIC CHORIOCARCINOMA
     Dosage: (100 Milligram/Milliliter)
  3. CISPLATIN [Suspect]
     Indication: METASTATIC CHORIOCARCINOMA
     Dosage: (75 Milligram/Milliliters)
  4. DACTINOMYCIN [Suspect]
     Indication: METASTATIC CHORIOCARCINOMA
     Route: 042
  5. METHOTREXATE (METHOTREXATE) [Suspect]
     Indication: METASTATIC CHORIOCARCINOMA
     Dosage: (1 mg/kg, DAYS 1,3,5, and 7 every 3 weeks), intrathecal
     Route: 037
  6. METHOTREXATE (METHOTREXATE) [Suspect]
     Indication: METASTATIC CHORIOCARCINOMA
     Dosage: (1000 Milligram/MIlliliters, DAY 1 EVERY 2 WEEKS), Intrathecal
  7. METHOTREXATE (METHOTREXATE) [Suspect]
     Indication: METASTATIC CHORIOCARCINOMA
     Dosage: (300 Mmilligram/Milliliters, DAY 8 EVERY 2 WEEKS), Intrathecal

REACTIONS (2)
  - Sepsis [None]
  - Endocarditis [None]
